FAERS Safety Report 6887063-9 (Version None)
Quarter: 2010Q3

REPORT INFORMATION
  Report Type: 
  Country: None (occurrence: None)
  Receive Date: 20100730
  Receipt Date: 20100106
  Transmission Date: 20110219
  Serious: Yes (Other)
  Sender: FDA-Public Use
  Company Number: US-ASTRAZENECA-2009UW14563

PATIENT
  Age: 52 Year
  Sex: Female
  Weight: 102.1 kg

DRUGS (8)
  1. SEROQUEL [Suspect]
     Indication: HALLUCINATION, AUDITORY
     Route: 048
     Dates: start: 20031201, end: 20040201
  2. SEROQUEL [Suspect]
     Indication: BIPOLAR DISORDER
     Route: 048
     Dates: start: 20031201, end: 20040201
  3. SEROQUEL [Suspect]
     Route: 048
     Dates: start: 20071205
  4. SEROQUEL [Suspect]
     Route: 048
     Dates: start: 20071205
  5. PROSAC [Concomitant]
     Indication: DEPRESSION
  6. BENADRYL [Concomitant]
     Indication: ANXIETY
  7. LAMICTAL [Concomitant]
     Indication: BIPOLAR DISORDER
  8. INVEGA [Concomitant]
     Indication: DEPRESSION

REACTIONS (9)
  - BLOOD CHOLESTEROL INCREASED [None]
  - DIABETIC RETINAL OEDEMA [None]
  - EXTRAPYRAMIDAL DISORDER [None]
  - EYE DISORDER [None]
  - HYPERLIPIDAEMIA [None]
  - OBESITY [None]
  - TARDIVE DYSKINESIA [None]
  - TYPE 2 DIABETES MELLITUS [None]
  - WEIGHT INCREASED [None]
